FAERS Safety Report 6628132 (Version 5)
Quarter: 2013Q1

REPORT INFORMATION
  Report Type: Spontaneous
  Country: US (occurrence: US)
  Receive Date: 20080429
  Receipt Date: 20130102
  Transmission Date: 20140127
  Serious: Yes (Other)
  Sender: FDA-Public Use
  Company Number: US-ASTRAZENECA-2007UW14230

PATIENT
  Age: 72 Year
  Sex: Male

DRUGS (2)
  1. NEXIUM [Suspect]
     Route: 048
  2. CRESTOR [Suspect]
     Route: 048

REACTIONS (4)
  - Foot deformity [Unknown]
  - Retinal detachment [Unknown]
  - Breath alcohol test positive [Unknown]
  - Gastrooesophageal reflux disease [Unknown]
